FAERS Safety Report 8257885-0 (Version None)
Quarter: 2012Q2

REPORT INFORMATION
  Report Type: 
  Country: None (occurrence: None)
  Receive Date: 20120404
  Receipt Date: 20120402
  Transmission Date: 20120825
  Serious: Yes (Other)
  Sender: FDA-Public Use
  Company Number: US-PFIZER INC-2012083455

PATIENT
  Sex: Female
  Weight: 61 kg

DRUGS (4)
  1. PREMARIN [Suspect]
     Route: 048
  2. PROGESTERONE [Suspect]
     Dosage: UNK
  3. ASCORBIC ACID [Concomitant]
     Dosage: UNK
  4. PREMARIN [Suspect]
     Indication: MENOPAUSAL SYMPTOMS
     Dosage: 1.25 MG, 1X/DAY
     Route: 048

REACTIONS (3)
  - BODY HEIGHT DECREASED [None]
  - FEELING ABNORMAL [None]
  - OVARIAN CANCER [None]
